FAERS Safety Report 24047403 (Version 2)
Quarter: 2024Q3

REPORT INFORMATION
  Report Type: Spontaneous
  Country: JP (occurrence: None)
  Receive Date: 20240703
  Receipt Date: 20240718
  Transmission Date: 20241016
  Serious: No
  Sender: ASTRAZENECA
  Company Number: 2024A148754

PATIENT
  Age: 70 Year
  Sex: Male

DRUGS (10)
  1. DAPAGLIFLOZIN [Suspect]
     Active Substance: DAPAGLIFLOZIN
     Indication: Chronic kidney disease
     Route: 048
  2. FUROSEMIDE [Concomitant]
     Active Substance: FUROSEMIDE
     Dosage: 40.0MG UNKNOWN
  3. FUROSEMIDE [Concomitant]
     Active Substance: FUROSEMIDE
     Dosage: 40.0MG UNKNOWN
     Route: 048
  4. SPIRONOLACTONE [Concomitant]
     Active Substance: SPIRONOLACTONE
     Dosage: 50.0MG UNKNOWN
  5. SPIRONOLACTONE [Concomitant]
     Active Substance: SPIRONOLACTONE
     Dosage: 25.0MG UNKNOWN
  6. LOSARTAN POTASSIUM [Concomitant]
     Active Substance: LOSARTAN POTASSIUM
     Dosage: 25.0MG UNKNOWN
  7. CARVEDILOL [Concomitant]
     Active Substance: CARVEDILOL
     Dosage: 10.0MG UNKNOWN
  8. CARVEDILOL [Concomitant]
     Active Substance: CARVEDILOL
     Dosage: 2.5MG UNKNOWN
  9. CARVEDILOL [Concomitant]
     Active Substance: CARVEDILOL
     Dosage: 5.0MG UNKNOWN
  10. CARVEDILOL [Concomitant]
     Active Substance: CARVEDILOL
     Dosage: 7.5MG UNKNOWN

REACTIONS (1)
  - Hyperkalaemia [Unknown]
